FAERS Safety Report 20703285 (Version 1)
Quarter: 2022Q2

REPORT INFORMATION
  Report Type: Spontaneous
  Country: US (occurrence: US)
  Receive Date: 20220413
  Receipt Date: 20220413
  Transmission Date: 20220721
  Serious: Yes (Other)
  Sender: FDA-Public Use
  Company Number: US-BRISTOL-MYERS SQUIBB COMPANY-2022-015959

PATIENT
  Sex: Male

DRUGS (22)
  1. OPDIVO [Suspect]
     Active Substance: NIVOLUMAB
     Indication: Anal cancer
     Dosage: REFER TO NARRATIVEINCLUDECLINICAL
     Dates: end: 20220317
  2. YERVOY [Suspect]
     Active Substance: IPILIMUMAB
     Indication: Anal cancer
     Dates: end: 20220317
  3. ALFUZOSIN [Concomitant]
     Active Substance: ALFUZOSIN
  4. CYMBALTA [Concomitant]
     Active Substance: DULOXETINE HYDROCHLORIDE
  5. PRILOSEC [Concomitant]
     Active Substance: OMEPRAZOLE MAGNESIUM
  6. OXYCODONE [Concomitant]
     Active Substance: OXYCODONE
  7. FISH OIL [Concomitant]
     Active Substance: FISH OIL
  8. ZOFRAN [Concomitant]
     Active Substance: ONDANSETRON HYDROCHLORIDE
  9. BIKTARVY [Concomitant]
     Active Substance: BICTEGRAVIR SODIUM\EMTRICITABINE\TENOFOVIR ALAFENAMIDE FUMARATE
  10. VITAMIN D [Concomitant]
     Active Substance: VITAMIN D NOS
  11. TESTOSTERONE [Concomitant]
     Active Substance: TESTOSTERONE
  12. CLINDAMYCIN [Concomitant]
     Active Substance: CLINDAMYCIN
  13. VITAMIN K [Concomitant]
     Active Substance: PHYTONADIONE
  14. ALDARA [Concomitant]
     Active Substance: IMIQUIMOD
  15. SYNTHROID [Concomitant]
     Active Substance: LEVOTHYROXINE SODIUM
  16. SINGULAIR [Concomitant]
     Active Substance: MONTELUKAST SODIUM
  17. LOTRIMIN [Concomitant]
     Active Substance: CLOTRIMAZOLE
  18. LIPITOR [Concomitant]
     Active Substance: ATORVASTATIN CALCIUM
  19. LOTRIMIN [Concomitant]
     Active Substance: CLOTRIMAZOLE
  20. LOPROX [Concomitant]
     Active Substance: CICLOPIROX\CICLOPIROX OLAMINE
  21. SPECTAZOLE [Concomitant]
     Active Substance: ECONAZOLE NITRATE
  22. GLUCOSAMINE [Concomitant]
     Active Substance: GLUCOSAMINE

REACTIONS (2)
  - Malignant neoplasm progression [Unknown]
  - Intentional product use issue [Unknown]
